FAERS Safety Report 6295590-0 (Version None)
Quarter: 2009Q3

REPORT INFORMATION
  Report Type: 
  Country: None (occurrence: None)
  Receive Date: 20090731
  Receipt Date: 20090717
  Transmission Date: 20100115
  Serious: Yes (Hospitalization, Other)
  Sender: FDA-Public Use
  Company Number: ADE2009-0751

PATIENT
  Age: 70 Year
  Sex: Male

DRUGS (11)
  1. SIMVASTATIN [Suspect]
     Indication: CEREBROVASCULAR ACCIDENT
     Dosage: 80MG - DAILY - ORAL
     Route: 048
     Dates: start: 20090322, end: 20090507
  2. INEGY (EZETIMIB 10MG/SIMVASTATIN 20MG) [Suspect]
     Indication: CEREBROVASCULAR ACCIDENT
     Dosage: 1 TABLET DAILY - ORAL
     Route: 048
     Dates: start: 20090507, end: 20090512
  3. PLAVIX [Suspect]
     Indication: EMBOLISM
     Dosage: 1 TABLET - DAILY - ORAL
     Route: 048
     Dates: start: 20090325
  4. PLAVIX [Suspect]
     Indication: PROPHYLAXIS
     Dosage: 1 TABLET - DAILY - ORAL
     Route: 048
     Dates: start: 20090325
  5. ASPIRIN [Suspect]
     Indication: EMBOLISM
     Dosage: 100 MG-DAILY-ORAL
     Route: 048
     Dates: start: 20090323, end: 20090507
  6. ASPIRIN [Suspect]
     Indication: PROPHYLAXIS
     Dosage: 100 MG-DAILY-ORAL
     Route: 048
     Dates: start: 20090323, end: 20090507
  7. FUROSEMIDE [Suspect]
     Indication: RENAL FAILURE
     Dosage: 40MG - BID - ORAL
     Route: 048
     Dates: start: 20090401
  8. ALLOPURINOL [Concomitant]
  9. LERCANIDIPINE [Concomitant]
  10. RAMIPRIL [Concomitant]
  11. MOXONIDINE [Concomitant]

REACTIONS (7)
  - ANAEMIA [None]
  - DIZZINESS [None]
  - EPISTAXIS [None]
  - HYPOTENSION [None]
  - MYALGIA [None]
  - RENAL FAILURE [None]
  - RHABDOMYOLYSIS [None]
